FAERS Safety Report 5569608-4 (Version None)
Quarter: 2007Q4

REPORT INFORMATION
  Report Type: 
  Country: None (occurrence: None)
  Receive Date: 20071218
  Receipt Date: 20071203
  Transmission Date: 20080405
  Serious: Yes (Life-Threatening, Hospitalization)
  Sender: FDA-Public Use
  Company Number: 164741ISR

PATIENT
  Age: 68 Year
  Sex: Female

DRUGS (3)
  1. ATENOLOL [Suspect]
     Indication: HYPERTENSION
     Dosage: 100 MG (100 MG, 1 IN 1 D), ORAL
     Route: 048
     Dates: end: 20071024
  2. NIFEDIPINE [Suspect]
     Indication: HYPERTENSION
     Dosage: 90 MG (90 MG, 1 IN 1 D), ORAL
     Route: 048
     Dates: end: 20071024
  3. AMILORIDE W/FURSEMIDE [Suspect]
     Indication: HYPERTENSION
     Dosage: ORAL
     Route: 048
     Dates: end: 20071024

REACTIONS (6)
  - ATRIOVENTRICULAR BLOCK COMPLETE [None]
  - BLOOD GLUCOSE INCREASED [None]
  - BRADYCARDIA [None]
  - HYPOTENSION [None]
  - LACTIC ACIDOSIS [None]
  - MALAISE [None]
